FAERS Safety Report 6418134-9 (Version None)
Quarter: 2009Q4

REPORT INFORMATION
  Report Type: 
  Country: None (occurrence: None)
  Receive Date: 20091026
  Receipt Date: 20091013
  Transmission Date: 20100525
  Serious: Yes (Hospitalization)
  Sender: FDA-Public Use
  Company Number: ADR38202009

PATIENT
  Age: 44 Year
  Sex: Male

DRUGS (4)
  1. SIMVASTATIN [Suspect]
     Indication: PROPHYLAXIS
     Dosage: 40 MG, ORAL USE
     Route: 048
     Dates: start: 20051201, end: 20071201
  2. GLICLAZIDE [Concomitant]
  3. METFORMIN HCL [Concomitant]
  4. ROSIGLITAZONE [Concomitant]

REACTIONS (2)
  - AGGRESSION [None]
  - DEPRESSION [None]
